FAERS Safety Report 11089179 (Version 1)
Quarter: 2015Q2

REPORT INFORMATION
  Report Type: Other
  Country: None (occurrence: GB)
  Receive Date: 20150505
  Receipt Date: 20150505
  Transmission Date: 20150821
  Serious: Yes (Death)
  Sender: FDA-Public Use
  Company Number: GB-AUROBINDO-AUR-APL-2012-04424

PATIENT

DRUGS (2)
  1. PAROXETINE TABLETS 20 MG [Suspect]
     Active Substance: PAROXETINE HYDROCHLORIDE
     Indication: PRODUCT USED FOR UNKNOWN INDICATION
     Dosage: 60 MG,DAILY,
     Route: 065
  2. ZAPONEX [Suspect]
     Active Substance: CLOZAPINE
     Indication: PRODUCT USED FOR UNKNOWN INDICATION
     Dosage: 250 MG,TWO TIMES A DAY,
     Route: 048
     Dates: start: 20050805, end: 20100318

REACTIONS (3)
  - Circulatory collapse [Fatal]
  - Drug level increased [Fatal]
  - Coronary artery disease [Fatal]
